FAERS Safety Report 22962901 (Version 6)
Quarter: 2024Q2

REPORT INFORMATION
  Report Type: Spontaneous
  Country: CA (occurrence: CA)
  Receive Date: 20230920
  Receipt Date: 20240528
  Transmission Date: 20240716
  Serious: Yes (Hospitalization, Other)
  Sender: FDA-Public Use
  Company Number: CA-PFIZER INC-202300273838

PATIENT
  Age: 38 Year
  Sex: Female
  Weight: 73 kg

DRUGS (12)
  1. RUXIENCE [Suspect]
     Active Substance: RITUXIMAB-PVVR
     Indication: Granulomatosis with polyangiitis
     Dosage: 1 G, 2 DOSES
     Route: 042
     Dates: start: 202309
  2. RUXIENCE [Suspect]
     Active Substance: RITUXIMAB-PVVR
     Dosage: 1 G, 2 DOSES
     Route: 042
     Dates: start: 20230912, end: 20230926
  3. RUXIENCE [Suspect]
     Active Substance: RITUXIMAB-PVVR
     Dosage: 1 G, 2 DOSES
     Route: 042
     Dates: start: 20230926
  4. RUXIENCE [Suspect]
     Active Substance: RITUXIMAB-PVVR
     Dosage: 500 MG X1 DOSE
     Route: 042
     Dates: start: 20240131, end: 20240131
  5. DEXAMETHASONE [Concomitant]
     Active Substance: DEXAMETHASONE
     Dosage: 10.5 MG
  6. DEXAMETHASONE [Concomitant]
     Active Substance: DEXAMETHASONE
     Dosage: 10 MG
  7. DEXAMETHASONE [Concomitant]
     Active Substance: DEXAMETHASONE
     Dosage: 6 MG, DAILY
     Route: 048
  8. DEXAMETHASONE [Concomitant]
     Active Substance: DEXAMETHASONE
     Dosage: 5.5 MG, DAILY
  9. METHOTREXATE [Concomitant]
     Active Substance: METHOTREXATE
     Indication: Granulomatosis with polyangiitis
     Dosage: 1 DF
     Dates: start: 202307
  10. PREDNISONE [Concomitant]
     Active Substance: PREDNISONE
     Dosage: UNK
  11. SEPTRA [Concomitant]
     Active Substance: SULFAMETHOXAZOLE\TRIMETHOPRIM
     Dosage: UNK,EVERY MWF
  12. SEPTRA [Concomitant]
     Active Substance: SULFAMETHOXAZOLE\TRIMETHOPRIM
     Dosage: 1 DF, EVERY MWF

REACTIONS (17)
  - Mastoiditis [Unknown]
  - Hyponatraemia [Unknown]
  - Vascular access complication [Unknown]
  - Deafness [Not Recovered/Not Resolved]
  - Compression fracture [Unknown]
  - Muscular weakness [Unknown]
  - Deafness neurosensory [Unknown]
  - Cushing^s syndrome [Unknown]
  - Cranial nerve palsies multiple [Unknown]
  - Face oedema [Unknown]
  - Oedema peripheral [Unknown]
  - Erythromelalgia [Unknown]
  - Joint swelling [Unknown]
  - Paraesthesia [Unknown]
  - Arthralgia [Unknown]
  - Rash [Unknown]
  - Off label use [Unknown]

NARRATIVE: CASE EVENT DATE: 20230101
